FAERS Safety Report 7302497-6 (Version None)
Quarter: 2011Q1

REPORT INFORMATION
  Report Type: 
  Country: None (occurrence: None)
  Receive Date: 20110218
  Receipt Date: 20110217
  Transmission Date: 20110831
  Serious: No
  Sender: FDA-Public Use
  Company Number: US-PFIZER INC-2011035411

PATIENT
  Sex: Female

DRUGS (5)
  1. CELEBREX [Suspect]
     Dosage: UNK
  2. LEVOTHYROXINE SODIUM [Suspect]
     Dosage: UNK
  3. ATENOLOL [Suspect]
     Dosage: UNK
  4. OXYCONTIN [Suspect]
     Dosage: UNK
  5. OXYCODONE HCL [Suspect]
     Dosage: UNK

REACTIONS (1)
  - DRUG SCREEN POSITIVE [None]
